FAERS Safety Report 5744913-7 (Version None)
Quarter: 2008Q2

REPORT INFORMATION
  Report Type: 
  Country: None (occurrence: None)
  Receive Date: 20080516
  Receipt Date: 20080501
  Transmission Date: 20081010
  Serious: Yes (Hospitalization)
  Sender: FDA-Public Use
  Company Number: 2008S1007655

PATIENT
  Age: 47 Year
  Sex: Female

DRUGS (4)
  1. CITALOPRAM HYDROBROMIDE [Suspect]
     Indication: DEPRESSION
     Dosage: ORAL
     Route: 048
     Dates: start: 20080129, end: 20080202
  2. CO-DYDRAMOL [Concomitant]
  3. DICLOFENAC [Concomitant]
  4. OMEPRAZOLE [Concomitant]

REACTIONS (7)
  - ARTHRALGIA [None]
  - DERMATITIS EXFOLIATIVE [None]
  - PRURITUS [None]
  - PYREXIA [None]
  - RASH ERYTHEMATOUS [None]
  - SWELLING FACE [None]
  - SYSTEMIC INFLAMMATORY RESPONSE SYNDROME [None]
